FAERS Safety Report 7702418-8 (Version None)
Quarter: 2011Q3

REPORT INFORMATION
  Report Type: 
  Country: None (occurrence: None)
  Receive Date: 20110822
  Receipt Date: 20110819
  Transmission Date: 20111222
  Serious: Yes (Hospitalization)
  Sender: FDA-Public Use
  Company Number: CA-ABBOTT-11P-028-0846569-00

PATIENT
  Sex: Female
  Weight: 63.56 kg

DRUGS (1)
  1. HUMIRA [Suspect]
     Indication: ANKYLOSING SPONDYLITIS
     Route: 058
     Dates: start: 20110804

REACTIONS (5)
  - DYSPNOEA [None]
  - HEADACHE [None]
  - ASTHENIA [None]
  - FATIGUE [None]
  - DIZZINESS [None]
